FAERS Safety Report 10602136 (Version 2)
Quarter: 2015Q1

REPORT INFORMATION
  Report Type: Report from Study
  Country: EG (occurrence: EG)
  Receive Date: 20141124
  Receipt Date: 20150128
  Transmission Date: 20150720
  Serious: Yes (Death)
  Sender: FDA-Public Use
  Company Number: EG-SA-2014SA158272

PATIENT
  Age: 72 Year
  Sex: Female

DRUGS (2)
  1. LANTUS [Suspect]
     Active Substance: INSULIN GLARGINE
     Indication: TYPE 2 DIABETES MELLITUS
     Route: 058
     Dates: start: 20130921
  2. MIXTARD HUMAN 70/30 [Concomitant]
     Active Substance: INSULIN HUMAN

REACTIONS (1)
  - Hypotension [Fatal]

NARRATIVE: CASE EVENT DATE: 20140401
